FAERS Safety Report 6309407-9 (Version None)
Quarter: 2009Q3

REPORT INFORMATION
  Report Type: 
  Country: None (occurrence: None)
  Receive Date: 20090814
  Receipt Date: 20090806
  Transmission Date: 20100115
  Serious: No
  Sender: FDA-Public Use
  Company Number: JP-JNJFOC-20090802259

PATIENT

DRUGS (2)
  1. DUROTEP MT [Suspect]
     Dosage: A 25 UG/HR PATCH WAS REDUCED TO 18 UG/HR BY COVERING THE 25 UG/HR PATCH
     Route: 062
  2. DUROTEP MT [Suspect]
     Indication: CANCER PAIN
     Route: 062

REACTIONS (2)
  - SOMNOLENCE [None]
  - WRONG TECHNIQUE IN DRUG USAGE PROCESS [None]
